FAERS Safety Report 6277421-8 (Version None)
Quarter: 2009Q3

REPORT INFORMATION
  Report Type: 
  Country: None (occurrence: None)
  Receive Date: 20090722
  Receipt Date: 20090521
  Transmission Date: 20100115
  Serious: No
  Sender: FDA-Public Use
  Company Number: US-BRISTOL-MYERS SQUIBB COMPANY-14634349

PATIENT
  Age: 83 Year
  Sex: Male
  Weight: 54 kg

DRUGS (2)
  1. COUMADIN [Suspect]
     Indication: ATRIAL FIBRILLATION
     Dates: start: 20081208
  2. SOTALOL [Concomitant]

REACTIONS (1)
  - BLOOD URINE PRESENT [None]
